FAERS Safety Report 11596842 (Version 2)
Quarter: 2020Q4

REPORT INFORMATION
  Report Type: Report from Study
  Country: US (occurrence: US)
  Receive Date: 20151006
  Receipt Date: 20201109
  Transmission Date: 20210113
  Serious: Yes (Hospitalization)
  Sender: FDA-Public Use
  Company Number: US-ROCHE-1640931

PATIENT
  Age: 36 Year
  Sex: Female
  Weight: 95.3 kg

DRUGS (7)
  1. DOCETAXEL. [Suspect]
     Active Substance: DOCETAXEL
     Indication: BREAST CANCER
     Dosage: OVER 60 MIN ON DAY 1, CYCLE 1 AND 2-6.?LAST DOSE ADMINISTERED: 07/APR/2015.
     Route: 042
     Dates: start: 20141216
  2. PERTUZUMAB. [Suspect]
     Active Substance: PERTUZUMAB
     Dosage: OVER 30-60 MIN ON DAY 1, CYCLE 2-6?LAST DOSE ADMINISTERED: 07/APR/2015.
     Route: 042
  3. PERTUZUMAB. [Suspect]
     Active Substance: PERTUZUMAB
     Indication: BREAST CANCER
     Dosage: OVER 60 MIN ON DAY 1, CYCLE 1
     Route: 042
     Dates: start: 20141216
  4. TRASTUZUMAB. [Suspect]
     Active Substance: TRASTUZUMAB
     Indication: BREAST CANCER
     Dosage: OVER 90 MIN ON DAY 1, CYCLE 1.
     Route: 042
     Dates: start: 20141216
  5. CARBOPLATIN. [Suspect]
     Active Substance: CARBOPLATIN
     Indication: BREAST CANCER
     Dosage: AUC=6 MG/ML/MIN, OVER 30-60MIN ON DAY 1 OF CYCLE 1 AND 2-6.?LAST DOSE ADMINISTERED: 07/APR/2015.
     Route: 042
     Dates: start: 20141216
  6. TRASTUZUMAB. [Suspect]
     Active Substance: TRASTUZUMAB
     Dosage: OVER 30-60 MIN ON DAY, CYCLE 2-6.?LAST DOSE ADMINISTERED: 07/APR/2015.
     Route: 042
  7. ARIMIDEX [Concomitant]
     Active Substance: ANASTROZOLE
     Route: 048
     Dates: start: 20141216

REACTIONS (1)
  - Enterocolitis infectious [Recovered/Resolved]

NARRATIVE: CASE EVENT DATE: 20150226
